FAERS Safety Report 6176164-9 (Version None)
Quarter: 2009Q2

REPORT INFORMATION
  Report Type: 
  Country: None (occurrence: None)
  Receive Date: 20090501
  Receipt Date: 20090427
  Transmission Date: 20091009
  Serious: Yes (Death)
  Sender: FDA-Public Use
  Company Number: FR-ASTRAZENECA-1999AS00273

PATIENT
  Age: 19 Month
  Sex: Female
  Weight: 10 kg

DRUGS (1)
  1. LIDOCAINE HCL IN PLASTIC CONTAINER [Suspect]
     Route: 048
     Dates: start: 19991015

REACTIONS (4)
  - BRADYCARDIA [None]
  - CONVULSION [None]
  - CYANOSIS [None]
  - HYPOTONIA [None]
